FAERS Safety Report 6591240-4 (Version None)
Quarter: 2010Q1

REPORT INFORMATION
  Report Type: 
  Country: None (occurrence: None)
  Receive Date: 20100219
  Receipt Date: 20100211
  Transmission Date: 20100710
  Serious: Yes (Other)
  Sender: FDA-Public Use
  Company Number: PHHY2010PL05751

PATIENT
  Age: 17 Year
  Sex: Female

DRUGS (10)
  1. CYCLOSPORINE [Suspect]
     Indication: APLASTIC ANAEMIA
     Dosage: 5 MG/KG IN TWO DOSES
     Route: 048
     Dates: start: 20060201
  2. CYCLOSPORINE [Suspect]
     Dosage: 5 MG/KG IN TWO DOSES
     Route: 048
     Dates: start: 20061101
  3. SOLU-MEDROL [Suspect]
     Indication: APLASTIC ANAEMIA
     Dosage: 2-1-0.5 MG/KG
     Dates: start: 20060201
  4. SOLU-MEDROL [Suspect]
     Dosage: UNK
     Dates: start: 20061101
  5. ANTILYMPHOCYTE IMMUNOGLOBULIN (HORSE) [Concomitant]
     Indication: APLASTIC ANAEMIA
     Dosage: 15 MG/KG, UNK
     Dates: start: 20061101
  6. NEUPOGEN [Concomitant]
  7. ANTICOAGULANTS [Concomitant]
     Indication: APLASTIC ANAEMIA
  8. ANTILYMPHOCYTE IMMUNOGLOBULIN (RABBIT) [Concomitant]
     Indication: APLASTIC ANAEMIA
     Dosage: 3.75 MG/KG, UNK
     Route: 042
     Dates: start: 20060201
  9. NEULASTA [Concomitant]
     Indication: APLASTIC ANAEMIA
     Dosage: UNK
     Dates: start: 20060201
  10. NEULASTA [Concomitant]
     Dosage: UNK
     Dates: start: 20061101

REACTIONS (8)
  - ACNE [None]
  - FIBROADENOMA OF BREAST [None]
  - GINGIVAL HYPERTROPHY [None]
  - HAEMORRHAGIC DIATHESIS [None]
  - HIRSUTISM [None]
  - MENORRHAGIA [None]
  - PYREXIA [None]
  - TUMOUR EXCISION [None]
